FAERS Safety Report 13963409 (Version 2)
Quarter: 2017Q3

REPORT INFORMATION
  Report Type: Report from Study
  Country: None (occurrence: US)
  Receive Date: 20170913
  Receipt Date: 20170915
  Transmission Date: 20171128
  Serious: Yes (Hospitalization, Other)
  Sender: FDA-Public Use
  Company Number: US-ABBVIE-17K-163-1988025-00

PATIENT
  Sex: Female
  Weight: 102.15 kg

DRUGS (1)
  1. HUMIRA [Suspect]
     Active Substance: ADALIMUMAB
     Indication: RHEUMATOID ARTHRITIS
     Route: 058
     Dates: end: 20170424

REACTIONS (8)
  - Malaise [Recovered/Resolved]
  - Procedural complication [Unknown]
  - Post procedural myocardial infarction [Unknown]
  - Gastric cancer [Unknown]
  - Cholelithiasis [Recovered/Resolved]
  - Loss of consciousness [Unknown]
  - Procedural hypertension [Unknown]
  - Stomach mass [Unknown]

NARRATIVE: CASE EVENT DATE: 2016
